FAERS Safety Report 10052594 (Version 3)
Quarter: 2014Q2

REPORT INFORMATION
  Report Type: Spontaneous
  Country: US (occurrence: None)
  Receive Date: 20140331
  Receipt Date: 20140502
  Transmission Date: 20141212
  Serious: Yes (Hospitalization, Other)
  Sender: FDA-Public Use
  Company Number: UTC-046280

PATIENT
  Age: 71 Year
  Sex: Male
  Weight: 81.64 kg

DRUGS (2)
  1. TYVASO [Suspect]
     Indication: PULMONARY ARTERIAL HYPERTENSION
     Route: 055
     Dates: start: 20140313
  2. WARFARIN [Concomitant]

REACTIONS (3)
  - Oxygen saturation decreased [None]
  - Dyspnoea [None]
  - Wrong drug administered [None]
